FAERS Safety Report 15036128 (Version 25)
Quarter: 2020Q2

REPORT INFORMATION
  Report Type: Spontaneous
  Country: CA (occurrence: CA)
  Receive Date: 20180620
  Receipt Date: 20200619
  Transmission Date: 20200713
  Serious: Yes (Other)
  Sender: FDA-Public Use
  Company Number: CA-CELLTRION INC.-2018CA020603

PATIENT

DRUGS (24)
  1. INFLECTRA [Suspect]
     Active Substance: INFLIXIMAB-DYYB
     Dosage: 252 MG EVERY 4-6 WEEKS
     Route: 042
     Dates: start: 20190822
  2. INFLECTRA [Suspect]
     Active Substance: INFLIXIMAB-DYYB
     Dosage: 252 MG EVERY 4- 6 WEEKS
     Route: 042
     Dates: start: 20200423
  3. ADVIL [Concomitant]
     Active Substance: IBUPROFEN
     Dosage: UNK, AS NEEDED
     Route: 065
  4. INFLECTRA [Suspect]
     Active Substance: INFLIXIMAB-DYYB
     Dosage: 300 MG, 0, 2, THEN EVERY 8 WEEKS
     Route: 042
     Dates: start: 20180928
  5. INFLECTRA [Suspect]
     Active Substance: INFLIXIMAB-DYYB
     Dosage: 300 MG, 0, 2, THEN EVERY 8 WEEKS
     Route: 042
     Dates: start: 20181214
  6. INFLECTRA [Suspect]
     Active Substance: INFLIXIMAB-DYYB
     Dosage: 252 MG EVERY 4-6 WEEKS
     Route: 042
     Dates: start: 20190926
  7. INFLECTRA [Suspect]
     Active Substance: INFLIXIMAB-DYYB
     Dosage: 252 MG EVERY 4- 6 WEEKS
     Route: 042
     Dates: start: 20200312
  8. INFLECTRA [Suspect]
     Active Substance: INFLIXIMAB-DYYB
     Dosage: 252 MG EVERY 4-6 WEEKS
     Route: 042
     Dates: start: 20190124
  9. INFLECTRA [Suspect]
     Active Substance: INFLIXIMAB-DYYB
     Dosage: 400 MG EVERY 6 WEEKS
     Route: 042
     Dates: start: 20200611
  10. NAPROXEN. [Concomitant]
     Active Substance: NAPROXEN
     Dosage: UNK
     Route: 065
  11. METHOTREXATE. [Concomitant]
     Active Substance: METHOTREXATE
     Dosage: 8 TABLETS
     Route: 065
  12. INFLECTRA [Suspect]
     Active Substance: INFLIXIMAB-DYYB
     Indication: RHEUMATOID ARTHRITIS
     Dosage: 300 MG, 0, 2, THEN EVERY 8 WEEKS
     Route: 042
     Dates: start: 20180430, end: 20181214
  13. INFLECTRA [Suspect]
     Active Substance: INFLIXIMAB-DYYB
     Dosage: 300 MG, 0, 2, THEN EVERY 8 WEEKS
     Route: 042
     Dates: start: 20180611
  14. ARAVA [Concomitant]
     Active Substance: LEFLUNOMIDE
     Dosage: 20 MG, UNK
     Route: 065
  15. INFLECTRA [Suspect]
     Active Substance: INFLIXIMAB-DYYB
     Dosage: 252 MG EVERY 4-6 WEEKS
     Route: 042
     Dates: start: 20190711
  16. INFLECTRA [Suspect]
     Active Substance: INFLIXIMAB-DYYB
     Dosage: 300 MG, 0, 2, THEN EVERY 8 WEEKS
     Route: 042
     Dates: start: 20180514
  17. INFLECTRA [Suspect]
     Active Substance: INFLIXIMAB-DYYB
     Dosage: 300 MG, 0, 2, THEN EVERY 8 WEEKS
     Route: 042
     Dates: start: 20181109
  18. INFLECTRA [Suspect]
     Active Substance: INFLIXIMAB-DYYB
     Dosage: 252 MG EVERY 4-6 WEEKS
     Route: 042
     Dates: start: 20190530
  19. INFLECTRA [Suspect]
     Active Substance: INFLIXIMAB-DYYB
     Dosage: 252 MG EVERY 4-6 WEEKS
     Route: 042
     Dates: start: 20191111
  20. INFLECTRA [Suspect]
     Active Substance: INFLIXIMAB-DYYB
     Dosage: 400 MG EVERY 4-6 WEEKS
     Route: 042
     Dates: start: 20191219
  21. INFLECTRA [Suspect]
     Active Substance: INFLIXIMAB-DYYB
     Dosage: 400 MG EVERY 4-6 WEEKS
     Route: 042
     Dates: start: 20200129
  22. INFLECTRA [Suspect]
     Active Substance: INFLIXIMAB-DYYB
     Dosage: 252 MG EVERY 4-6 WEEKS
     Route: 042
     Dates: start: 20190307
  23. FOLIC ACID. [Concomitant]
     Active Substance: FOLIC ACID
     Dosage: UNK
     Route: 065
  24. HYDROXYCHLOROQUINE [Concomitant]
     Active Substance: HYDROXYCHLOROQUINE
     Dosage: 400 MG, UNK
     Route: 065

REACTIONS (24)
  - Back pain [Unknown]
  - Injection site pain [Unknown]
  - Headache [Unknown]
  - Pain in extremity [Unknown]
  - Vomiting [Unknown]
  - Incorrect dose administered [Unknown]
  - Off label use [Unknown]
  - Nausea [Unknown]
  - Joint injury [Recovering/Resolving]
  - Hair texture abnormal [Unknown]
  - Pruritus [Recovered/Resolved]
  - Infusion site haemorrhage [Recovering/Resolving]
  - Joint swelling [Unknown]
  - Heart rate decreased [Unknown]
  - Pain [Recovering/Resolving]
  - Tachycardia [Recovered/Resolved]
  - Peripheral swelling [Unknown]
  - Drug ineffective [Unknown]
  - Weight increased [Unknown]
  - Dry skin [Unknown]
  - Off label use [Unknown]
  - Intentional product use issue [Unknown]
  - Erythema [Unknown]
  - Blood pressure increased [Unknown]

NARRATIVE: CASE EVENT DATE: 20180514
